FAERS Safety Report 6604689-8 (Version None)
Quarter: 2010Q1

REPORT INFORMATION
  Report Type: 
  Country: None (occurrence: None)
  Receive Date: 20100226
  Receipt Date: 20100217
  Transmission Date: 20100710
  Serious: Yes (Other)
  Sender: FDA-Public Use
  Company Number: JP-ROCHE-686147

PATIENT
  Sex: Male
  Weight: 64 kg

DRUGS (2)
  1. ANEXATE [Suspect]
     Indication: DRUG USE FOR UNKNOWN INDICATION
     Route: 042
     Dates: start: 20090820, end: 20090820
  2. DORMICUM (INJ) [Concomitant]
     Route: 042
     Dates: start: 20090820, end: 20090820

REACTIONS (1)
  - LOSS OF CONSCIOUSNESS [None]
